FAERS Safety Report 10789997 (Version 1)
Quarter: 2015Q1

REPORT INFORMATION
  Report Type: Spontaneous
  Country: AU (occurrence: AU)
  Receive Date: 20150212
  Receipt Date: 20150212
  Transmission Date: 20150721
  Serious: Yes (Other)
  Sender: FDA-Public Use
  Company Number: AU-BAXTER-2015BAX007710

PATIENT
  Age: 14 Year
  Sex: Male

DRUGS (8)
  1. HOLOXAN IFOSFAMIDE 3G POWDER FOR INJECTION VIAL [Suspect]
     Active Substance: IFOSFAMIDE
     Indication: OFF LABEL USE
  2. TEMOZOLOMIDE. [Suspect]
     Active Substance: TEMOZOLOMIDE
     Indication: DESMOPLASTIC SMALL ROUND CELL TUMOUR
     Route: 065
  3. DOXORUBICIN [Suspect]
     Active Substance: DOXORUBICIN
     Indication: DESMOPLASTIC SMALL ROUND CELL TUMOUR
     Route: 065
  4. VINCRISTINE [Suspect]
     Active Substance: VINCRISTINE
     Indication: DESMOPLASTIC SMALL ROUND CELL TUMOUR
     Route: 065
  5. ETOPOSIDE. [Suspect]
     Active Substance: ETOPOSIDE
     Indication: DESMOPLASTIC SMALL ROUND CELL TUMOUR
     Route: 065
  6. HOLOXAN IFOSFAMIDE 3G POWDER FOR INJECTION VIA L [Suspect]
     Active Substance: IFOSFAMIDE
     Indication: DESMOPLASTIC SMALL ROUND CELL TUMOUR
     Route: 042
  7. CISPLATIN. [Suspect]
     Active Substance: CISPLATIN
     Indication: DESMOPLASTIC SMALL ROUND CELL TUMOUR
     Route: 065
  8. IRINOTECAN [Suspect]
     Active Substance: IRINOTECAN
     Indication: DESMOPLASTIC SMALL ROUND CELL TUMOUR
     Route: 065

REACTIONS (5)
  - Recurrent cancer [Unknown]
  - Muscle haemorrhage [Unknown]
  - Desmoplastic small round cell tumour [Unknown]
  - Metastases to lymph nodes [Unknown]
  - Metastases to liver [Unknown]
